FAERS Safety Report 4733843-5 (Version None)
Quarter: 2005Q3

REPORT INFORMATION
  Report Type: 
  Country: None (occurrence: None)
  Receive Date: 20050729
  Receipt Date: 20050713
  Transmission Date: 20060218
  Serious: Yes (Hospitalization, Other)
  Sender: FDA-Public Use
  Company Number: 430004L05FRA

PATIENT
  Age: 30 Year
  Sex: Female

DRUGS (2)
  1. NOVANTRONE [Suspect]
     Indication: MULTIPLE SCLEROSIS
  2. UNSPECIFIED ORAL ANTICOAGULANT PRODUCTS [Concomitant]

REACTIONS (2)
  - CARDIOTOXICITY [None]
  - CEREBRAL INFARCTION [None]
